FAERS Safety Report 13641116 (Version 1)
Quarter: 2017Q2

REPORT INFORMATION
  Report Type: Spontaneous
  Country: CN (occurrence: CN)
  Receive Date: 20170612
  Receipt Date: 20170612
  Transmission Date: 20170830
  Serious: Yes (Other)
  Sender: FDA-Public Use
  Company Number: CN-CIPLA LTD.-2017CN10194

PATIENT

DRUGS (2)
  1. GEMCITABINE [Suspect]
     Active Substance: GEMCITABINE\GEMCITABINE HYDROCHLORIDE
     Indication: TRANSITIONAL CELL CANCER OF THE RENAL PELVIS AND URETER
     Dosage: 1000 MG/M2, ON DAYS 1 AND 8, EVERY 28 DAYS
  2. CARBOPLATIN. [Suspect]
     Active Substance: CARBOPLATIN
     Indication: TRANSITIONAL CELL CANCER OF THE RENAL PELVIS AND URETER
     Dosage: AUC X 5 ON DAY 1, EVERY 28 DAYS

REACTIONS (1)
  - Disease progression [Unknown]
